FAERS Safety Report 9192477 (Version 1)
Quarter: 2013Q1

REPORT INFORMATION
  Report Type: Spontaneous
  Country: US (occurrence: US)
  Receive Date: 20130327
  Receipt Date: 20130327
  Transmission Date: 20140127
  Serious: No
  Sender: FDA-Public Use
  Company Number: US-PFIZER INC-2013096454

PATIENT
  Age: 62 Year
  Sex: Male
  Weight: 68.03 kg

DRUGS (3)
  1. LIPITOR [Suspect]
     Indication: BLOOD CHOLESTEROL INCREASED
     Dosage: 10 MG, EVERY TWO DAYS
     Dates: start: 201303
  2. LIPITOR [Suspect]
     Indication: BLOOD TRIGLYCERIDES INCREASED
  3. PRAVACHOL [Suspect]
     Dosage: UNK
     Dates: start: 201302, end: 201303

REACTIONS (2)
  - Myalgia [Not Recovered/Not Resolved]
  - Inappropriate schedule of drug administration [Unknown]
